FAERS Safety Report 6021850-4 (Version None)
Quarter: 2008Q4

REPORT INFORMATION
  Report Type: 
  Country: None (occurrence: None)
  Receive Date: 20081229
  Receipt Date: 20081216
  Transmission Date: 20090506
  Serious: Yes (Other)
  Sender: FDA-Public Use
  Company Number: US-ROCHE-603714

PATIENT
  Age: 14 Year
  Sex: Female

DRUGS (2)
  1. ACCUTANE [Suspect]
     Indication: ACNE
     Dosage: DOSE: 01 AT AM AND 01 AT PM
     Route: 065
     Dates: start: 20080901
  2. VYVANSE [Concomitant]

REACTIONS (11)
  - ABNORMAL BEHAVIOUR [None]
  - BLOOD CREATINE PHOSPHOKINASE INCREASED [None]
  - BREATH ODOUR [None]
  - DYSPNOEA [None]
  - HEADACHE [None]
  - LOSS OF CONSCIOUSNESS [None]
  - MUSCULAR WEAKNESS [None]
  - PROTEIN URINE PRESENT [None]
  - RED BLOOD CELLS URINE POSITIVE [None]
  - SELF-INJURIOUS IDEATION [None]
  - WHITE BLOOD CELLS URINE POSITIVE [None]
